FAERS Safety Report 5712268-X (Version None)
Quarter: 2008Q2

REPORT INFORMATION
  Report Type: 
  Country: None (occurrence: None)
  Receive Date: 20080418
  Receipt Date: 20080404
  Transmission Date: 20081010
  Serious: Yes (Other)
  Sender: FDA-Public Use
  Company Number: OPER20080067

PATIENT
  Age: 51 Year
  Sex: Male
  Weight: 87.0906 kg

DRUGS (1)
  1. OPANA ER [Suspect]
     Dosage: PER ORAL
     Route: 048

REACTIONS (2)
  - BRONCHIAL HYPERREACTIVITY [None]
  - WHEEZING [None]
